FAERS Safety Report 9770178 (Version 2)
Quarter: 2013Q4

REPORT INFORMATION
  Report Type: Spontaneous
  Country: US (occurrence: US)
  Receive Date: 20131218
  Receipt Date: 20131226
  Transmission Date: 20140711
  Serious: Yes (Death, Other)
  Sender: FDA-Public Use
  Company Number: US-BAXTER-2013BAX050287

PATIENT
  Sex: Female

DRUGS (2)
  1. DIANEAL LOW CALCIUM (ULTRABAG) [Suspect]
     Indication: PERITONEAL DIALYSIS
     Route: 033
     Dates: end: 20131119
  2. DIANEAL LOW CALCIUM (ULTRABAG) [Suspect]
     Indication: PERITONEAL DIALYSIS
     Route: 033
     Dates: end: 20131119

REACTIONS (7)
  - Cardiac failure [Fatal]
  - Post procedural infection [Fatal]
  - Lower respiratory tract infection [Fatal]
  - Myocardial infarction [Unknown]
  - Chest pain [Unknown]
  - Coronary artery occlusion [Unknown]
  - Device occlusion [Unknown]
